FAERS Safety Report 6467425-4 (Version None)
Quarter: 2009Q4

REPORT INFORMATION
  Report Type: 
  Country: None (occurrence: None)
  Receive Date: 20091202
  Receipt Date: 20091123
  Transmission Date: 20100525
  Serious: Yes (Other)
  Sender: FDA-Public Use
  Company Number: B0598231A

PATIENT
  Sex: Male

DRUGS (8)
  1. ROPINIROLE [Suspect]
     Indication: PARKINSON'S DISEASE
  2. SINEMET [Concomitant]
  3. STALEVO 100 [Concomitant]
  4. MADOPAR [Concomitant]
  5. LEVODOPA [Concomitant]
  6. CITALOPRAM HYDROBROMIDE [Concomitant]
  7. ENTACAPONE [Concomitant]
  8. RASAGILINE MESILATE [Concomitant]

REACTIONS (5)
  - DOPAMINE DYSREGULATION SYNDROME [None]
  - HYPERSEXUALITY [None]
  - PATHOLOGICAL GAMBLING [None]
  - POOR QUALITY SLEEP [None]
  - SOMNOLENCE [None]
